FAERS Safety Report 18912995 (Version 1)
Quarter: 2021Q1

REPORT INFORMATION
  Report Type: Spontaneous
  Country: US (occurrence: US)
  Receive Date: 20210218
  Receipt Date: 20210218
  Transmission Date: 20210420
  Serious: Yes (Other)
  Sender: FDA-Public Use
  Company Number: US-NOVEN PHARMACEUTICALS, INC.-2020US009373

PATIENT
  Age: 6 Year
  Sex: Male

DRUGS (3)
  1. DAYTRANA [Suspect]
     Active Substance: METHYLPHENIDATE
     Dosage: 20 MG, 11 HOURS PER DAY
     Route: 062
     Dates: start: 20190225
  2. DAYTRANA [Suspect]
     Active Substance: METHYLPHENIDATE
     Indication: ATTENTION DEFICIT HYPERACTIVITY DISORDER
     Dosage: 20MG/9 HOURS
     Route: 062
     Dates: start: 20201107
  3. DAYTRANA [Suspect]
     Active Substance: METHYLPHENIDATE
     Dosage: 20 MG, 11 HOURS PER DAY
     Route: 062
     Dates: start: 20190225

REACTIONS (6)
  - Decreased appetite [Unknown]
  - Device difficult to use [Recovered/Resolved]
  - Incorrect product administration duration [Not Recovered/Not Resolved]
  - Device issue [Recovered/Resolved]
  - Product administration error [Recovered/Resolved]
  - Device placement issue [Not Recovered/Not Resolved]

NARRATIVE: CASE EVENT DATE: 2019
